FAERS Safety Report 21851400 (Version 3)
Quarter: 2023Q1

REPORT INFORMATION
  Report Type: Spontaneous
  Country: US (occurrence: US)
  Receive Date: 20230112
  Receipt Date: 20230209
  Transmission Date: 20230417
  Serious: No
  Sender: FDA-Public Use
  Company Number: US-002147023-NVSC2023US004495

PATIENT
  Sex: Female

DRUGS (2)
  1. XIIDRA [Suspect]
     Active Substance: LIFITEGRAST
     Indication: Product used for unknown indication
     Dosage: UNK, BID
     Route: 047
     Dates: start: 20221228
  2. XIIDRA [Suspect]
     Active Substance: LIFITEGRAST
     Dosage: 5 %, QD
     Route: 047

REACTIONS (2)
  - Eye pain [Unknown]
  - Vision blurred [Unknown]
